FAERS Safety Report 10094570 (Version 1)
Quarter: 2014Q2

REPORT INFORMATION
  Report Type: Spontaneous
  Country: US (occurrence: None)
  Receive Date: 20140421
  Receipt Date: 20140421
  Transmission Date: 20141212
  Serious: Yes (Other)
  Sender: FDA-Public Use
  Company Number: None

PATIENT
  Age: 23 Year
  Sex: Female

DRUGS (1)
  1. MIRENA [Suspect]
     Indication: CONTRACEPTION
     Route: 067
     Dates: start: 20130930, end: 20140418

REACTIONS (6)
  - Lethargy [None]
  - Dry mouth [None]
  - Amnesia [None]
  - Fatigue [None]
  - Antinuclear antibody positive [None]
  - Heart rate increased [None]
